FAERS Safety Report 6796281-X (Version None)
Quarter: 2010Q2

REPORT INFORMATION
  Report Type: 
  Country: None (occurrence: None)
  Receive Date: 20100624
  Receipt Date: 20100624
  Transmission Date: 20101027
  Serious: Yes (Other)
  Sender: FDA-Public Use
  Company Number: None

PATIENT
  Age: 43 Year
  Sex: Female
  Weight: 61.2356 kg

DRUGS (3)
  1. VERSED [Suspect]
     Indication: COLONOSCOPY
     Dosage: IV
     Route: 042
     Dates: start: 20100618, end: 20100618
  2. VERSED [Suspect]
     Indication: SEDATIVE THERAPY
     Dosage: IV
     Route: 042
     Dates: start: 20100618, end: 20100618
  3. FENTANYL [Suspect]
     Indication: PAIN MANAGEMENT
     Dosage: IV
     Route: 042
     Dates: start: 20100618, end: 20100618

REACTIONS (11)
  - AGITATION [None]
  - ANGER [None]
  - CRYING [None]
  - DISCOMFORT [None]
  - DRUG INEFFECTIVE [None]
  - FEAR [None]
  - FEELING OF DESPAIR [None]
  - IMPAIRED WORK ABILITY [None]
  - INSOMNIA [None]
  - PAIN [None]
  - UNWANTED AWARENESS DURING ANAESTHESIA [None]
